FAERS Safety Report 21576404 (Version 1)
Quarter: 2022Q4

REPORT INFORMATION
  Report Type: Spontaneous
  Country: US (occurrence: None)
  Receive Date: 20221109
  Receipt Date: 20221109
  Transmission Date: 20230113
  Serious: Yes (Hospitalization)
  Sender: FDA-Public Use
  Company Number: None

PATIENT
  Age: 58 Year
  Sex: Female

DRUGS (1)
  1. BENLYSTA [Suspect]
     Active Substance: BELIMUMAB
     Indication: Product used for unknown indication
     Dosage: 200MG OTHER  SUBCUTANEOUS?
     Route: 058
     Dates: start: 20211215

REACTIONS (5)
  - COVID-19 [None]
  - Insomnia [None]
  - Injection site pain [None]
  - Myocardial infarction [None]
  - Weight loss diet [None]

NARRATIVE: CASE EVENT DATE: 20220508
